FAERS Safety Report 7798923-9 (Version None)
Quarter: 2011Q4

REPORT INFORMATION
  Report Type: 
  Country: None (occurrence: None)
  Receive Date: 20111006
  Receipt Date: 20111003
  Transmission Date: 20120403
  Serious: No
  Sender: FDA-Public Use
  Company Number: US-PFIZER INC-2011201952

PATIENT
  Sex: Female
  Weight: 99.773 kg

DRUGS (2)
  1. VISTARIL [Suspect]
     Indication: INSOMNIA
     Dosage: 50 MG, 3X/DAY
     Route: 048
     Dates: start: 20110601
  2. LOW-OGESTREL-28 [Concomitant]
     Indication: ORAL CONTRACEPTION
     Dosage: DAILY

REACTIONS (1)
  - DRUG SCREEN POSITIVE [None]
